FAERS Safety Report 12880615 (Version 2)
Quarter: 2016Q4

REPORT INFORMATION
  Report Type: Spontaneous
  Country: BR (occurrence: BR)
  Receive Date: 20161025
  Receipt Date: 20161031
  Transmission Date: 20170207
  Serious: Yes (Hospitalization, Other)
  Sender: FDA-Public Use
  Company Number: BR-GLAXOSMITHKLINE-BR2016GSK152195

PATIENT
  Sex: Female
  Weight: 30.7 kg

DRUGS (11)
  1. BUSONID [Concomitant]
     Active Substance: BUDESONIDE
     Indication: RHINITIS
     Dosage: 2 PUFF(S), BID
     Route: 055
  2. BUSONID [Concomitant]
     Active Substance: BUDESONIDE
     Indication: SINUSITIS
  3. FLIXOTIDE (CFC-FREE) [Suspect]
     Active Substance: FLUTICASONE PROPIONATE
     Dosage: 250 UG, UNK
  4. PREDSIM (PREDNISOLONE) [Concomitant]
     Indication: ASTHMA
     Dosage: 5 ML, QD
     Route: 048
  5. FLIXOTIDE (CFC-FREE) [Suspect]
     Active Substance: FLUTICASONE PROPIONATE
     Indication: ASTHMA
     Dosage: 2 PUFF(S), BID
     Route: 055
     Dates: start: 2013
  6. BUSONID [Concomitant]
     Active Substance: BUDESONIDE
     Indication: ILL-DEFINED DISORDER
  7. AVAMYS [Suspect]
     Active Substance: FLUTICASONE FUROATE
     Indication: RHINITIS
     Route: 055
  8. DESALEX [Concomitant]
     Active Substance: DESLORATADINE
     Indication: HYPERSENSITIVITY
     Dosage: 5 ML, BID
     Route: 048
  9. AVAMYS [Suspect]
     Active Substance: FLUTICASONE FUROATE
     Indication: SINUSITIS
  10. AVAMYS [Suspect]
     Active Substance: FLUTICASONE FUROATE
     Indication: ILL-DEFINED DISORDER
  11. SINGULAIR [Concomitant]
     Active Substance: MONTELUKAST SODIUM
     Indication: IMMUNE SYSTEM DISORDER
     Dosage: 1 DF, QD
     Route: 048

REACTIONS (5)
  - Respiratory failure [Recovered/Resolved]
  - Asthmatic crisis [Unknown]
  - Product use issue [Unknown]
  - Therapy cessation [Unknown]
  - Drug ineffective [Unknown]
